FAERS Safety Report 5611215-9 (Version None)
Quarter: 2008Q1

REPORT INFORMATION
  Report Type: 
  Country: None (occurrence: None)
  Receive Date: 20080201
  Receipt Date: 20080128
  Transmission Date: 20080703
  Serious: Yes (Hospitalization, Other)
  Sender: FDA-Public Use
  Company Number: US-GILEAD-2007-0014640

PATIENT
  Sex: Female
  Weight: 63.56 kg

DRUGS (4)
  1. LETAIRIS [Suspect]
     Indication: PULMONARY HYPERTENSION
     Route: 048
     Dates: start: 20071022, end: 20071112
  2. LETAIRIS [Suspect]
     Route: 048
     Dates: start: 20071113, end: 20071216
  3. LETAIRIS [Suspect]
     Route: 048
     Dates: start: 20071217, end: 20080116
  4. REMODULIN [Concomitant]
     Indication: PULMONARY HYPERTENSION
     Route: 058

REACTIONS (2)
  - DIARRHOEA [None]
  - URTICARIA [None]
